FAERS Safety Report 16980197 (Version 1)
Quarter: 2019Q4

REPORT INFORMATION
  Report Type: Spontaneous
  Country: CN (occurrence: CN)
  Receive Date: 20191031
  Receipt Date: 20191031
  Transmission Date: 20200122
  Serious: Yes (Death)
  Sender: FDA-Public Use
  Company Number: CN-EXELIXIS-CABO-19024868

PATIENT
  Age: 72 Year
  Sex: Male

DRUGS (3)
  1. CABOMETYX [Suspect]
     Active Substance: CABOZANTINIB S-MALATE
     Indication: NON-SMALL CELL LUNG CANCER
     Dosage: 80 MG, QD
     Dates: start: 201804
  2. ICOTINIB [Suspect]
     Active Substance: ICOTINIB
     Dosage: 125 MG, BID
     Dates: start: 201806, end: 201807
  3. ICOTINIB [Suspect]
     Active Substance: ICOTINIB
     Indication: NON-SMALL CELL LUNG CANCER
     Dosage: 125 MG, TID
     Dates: start: 201804

REACTIONS (7)
  - Off label use [Unknown]
  - Cardiac failure [Fatal]
  - Rash [Unknown]
  - Malignant neoplasm progression [Unknown]
  - Vomiting [Unknown]
  - Discomfort [Unknown]
  - Nausea [Unknown]

NARRATIVE: CASE EVENT DATE: 201808
